FAERS Safety Report 14476509 (Version 2)
Quarter: 2018Q2

REPORT INFORMATION
  Report Type: Spontaneous
  Country: US (occurrence: US)
  Receive Date: 20180201
  Receipt Date: 20180611
  Transmission Date: 20180711
  Serious: No
  Sender: FDA-Public Use
  Company Number: US-SA-2018SA012058

PATIENT
  Age: 71 Year
  Sex: Female

DRUGS (2)
  1. PRALUENT [Suspect]
     Active Substance: ALIROCUMAB
     Indication: TYPE IIA HYPERLIPIDAEMIA
     Dosage: 75 DF,QOW
     Route: 058
     Dates: start: 201706
  2. LESCOL [Suspect]
     Active Substance: FLUVASTATIN SODIUM
     Dosage: UNK

REACTIONS (12)
  - Headache [Unknown]
  - Cough [Unknown]
  - Oropharyngeal pain [Unknown]
  - Back pain [Recovered/Resolved]
  - Pain in extremity [Recovered/Resolved]
  - Chills [Unknown]
  - Chest discomfort [Unknown]
  - Nausea [Unknown]
  - Nasal congestion [Unknown]
  - Body temperature [Unknown]
  - Loss of personal independence in daily activities [Unknown]
  - Ear infection [Unknown]
